FAERS Safety Report 12315593 (Version 5)
Quarter: 2016Q3

REPORT INFORMATION
  Report Type: Spontaneous
  Country: US (occurrence: US)
  Receive Date: 20160428
  Receipt Date: 20160711
  Transmission Date: 20161109
  Serious: Yes (Death, Hospitalization)
  Sender: FDA-Public Use
  Company Number: US-ACTELION-A-US2016-135225

PATIENT
  Age: 77 Year
  Sex: Female

DRUGS (4)
  1. LETAIRIS [Suspect]
     Active Substance: AMBRISENTAN
     Indication: PULMONARY ARTERIAL HYPERTENSION
     Dosage: 10 MG, UNK
     Route: 048
     Dates: start: 20100710, end: 20160502
  2. REVATIO [Concomitant]
     Active Substance: SILDENAFIL CITRATE
  3. LASIX [Concomitant]
     Active Substance: FUROSEMIDE
  4. VELETRI [Suspect]
     Active Substance: EPOPROSTENOL
     Indication: PULMONARY ARTERIAL HYPERTENSION
     Dosage: 70 NG/KG, PER MIN
     Route: 042
     Dates: start: 20121001, end: 20160502

REACTIONS (9)
  - Sarcoidosis [Not Recovered/Not Resolved]
  - Altered state of consciousness [Unknown]
  - Pyrexia [Not Recovered/Not Resolved]
  - Cognitive disorder [Unknown]
  - Device related infection [Recovered/Resolved]
  - Subacute endocarditis [Fatal]
  - Septic shock [Fatal]
  - Staphylococcal sepsis [Not Recovered/Not Resolved]
  - Pulmonary arterial hypertension [Unknown]

NARRATIVE: CASE EVENT DATE: 20151219
